FAERS Safety Report 9096523 (Version 1)
Quarter: 2013Q1

REPORT INFORMATION
  Report Type: Spontaneous
  Country: GB (occurrence: None)
  Receive Date: 20130124
  Receipt Date: 20130124
  Transmission Date: 20140127
  Serious: Yes (Hospitalization)
  Sender: FDA-Public Use
  Company Number: THQ2013A00412

PATIENT
  Age: 54 Year
  Sex: Female

DRUGS (16)
  1. LANSOPRAZOLE (LANSOPRAZOLE) [Suspect]
     Indication: PRODUCT USED FOR UNKNOWN INDICATION
  2. PIPERACILLIN, TAZOBACTAM [Suspect]
     Indication: SEPSIS
     Route: 042
     Dates: start: 20110104, end: 20110112
  3. FOLIC ACID [Concomitant]
  4. ASCORBIC ACID [Concomitant]
  5. THIAMINE [Concomitant]
  6. PREDNISOLONE [Concomitant]
  7. VITAMIN B COMPOUND (PYRIDOXINE HYDROCHLORIDE, THIAMINE HYDROCHLORIDE, RIBOFLAVIN, NICOTINAMIDE) [Concomitant]
  8. CELLCEPT (MYCOPHENOLATE MOPETIL) [Concomitant]
  9. FLUOXETINE [Concomitant]
  10. FERROUS SULPHATE (FERROUS SULFATE) [Concomitant]
  11. PRAVASTATIN [Concomitant]
  12. AMITRIPTYLINE [Concomitant]
  13. PROPRANOLOL [Concomitant]
  14. MULTIVITAMIN (VITAMINS NOS) [Concomitant]
  15. NOVOMIX (INSULIN ASPART) [Concomitant]
  16. PERINDOPRIL [Concomitant]

REACTIONS (2)
  - Clostridial infection [None]
  - Diarrhoea [None]
